FAERS Safety Report 10328130 (Version 1)
Quarter: 2014Q3

REPORT INFORMATION
  Report Type: Spontaneous
  Country: JP (occurrence: JP)
  Receive Date: 20140721
  Receipt Date: 20140721
  Transmission Date: 20150326
  Serious: Yes (Hospitalization)
  Sender: FDA-Public Use
  Company Number: PHJP2014JP000964

PATIENT
  Age: 57 Year
  Sex: Female

DRUGS (2)
  1. CARBAMAZEPINE. [Suspect]
     Active Substance: CARBAMAZEPINE
     Indication: STATUS EPILEPTICUS
     Route: 048
  2. LEVETIRACETAM. [Suspect]
     Active Substance: LEVETIRACETAM
     Indication: STATUS EPILEPTICUS
     Route: 048

REACTIONS (6)
  - Stupor [Recovering/Resolving]
  - Postictal psychosis [Recovering/Resolving]
  - Nervous system disorder [Recovering/Resolving]
  - Delusion [Recovering/Resolving]
  - Executive dysfunction [Not Recovered/Not Resolved]
  - Amnesia [Recovering/Resolving]
